FAERS Safety Report 17115927 (Version 1)
Quarter: 2019Q4

REPORT INFORMATION
  Report Type: Spontaneous
  Country: IN (occurrence: IN)
  Receive Date: 20191204
  Receipt Date: 20191204
  Transmission Date: 20200122
  Serious: Yes (Other)
  Sender: FDA-Public Use
  Company Number: None

PATIENT
  Age: 32 Year
  Sex: Male
  Weight: 62 kg

DRUGS (2)
  1. HP KIT COMBINATION OF AMOXICILLIN USP, TINIDAZOLE IP + OMEPRAZOL IP [Suspect]
     Active Substance: AMOXICILLIN\OMEPRAZOLE\TINIDAZOLE
     Indication: ABDOMINAL PAIN UPPER
     Route: 048
  2. HP KIT COMBINATION OF AMOXICILLIN USP, TINIDAZOLE IP + OMEPRAZOL IP [Suspect]
     Active Substance: AMOXICILLIN\OMEPRAZOLE\TINIDAZOLE
     Indication: ABDOMINAL DISCOMFORT
     Route: 048

REACTIONS (2)
  - Rash pruritic [None]
  - Rash [None]
